FAERS Safety Report 8577639-5 (Version None)
Quarter: 2012Q3

REPORT INFORMATION
  Report Type: 
  Country: None (occurrence: None)
  Receive Date: 20120807
  Receipt Date: 20120731
  Transmission Date: 20120928
  Serious: Yes (Death, Other)
  Sender: FDA-Public Use
  Company Number: IT-SANOFI-AVENTIS-2012SA054439

PATIENT

DRUGS (1)
  1. ENOXAPARIN SODIUM [Suspect]

REACTIONS (2)
  - HAEMORRHAGE [None]
  - DEATH [None]
